FAERS Safety Report 5818965-X (Version None)
Quarter: 2008Q3

REPORT INFORMATION
  Report Type: 
  Country: None (occurrence: None)
  Receive Date: 20080721
  Receipt Date: 20080721
  Transmission Date: 20090109
  Serious: Yes (Other)
  Sender: FDA-Public Use
  Company Number: None

PATIENT
  Sex: Male
  Weight: 68.86 kg

DRUGS (1)
  1. RITUXAN [Suspect]
     Dosage: 671MG IN 671CC

REACTIONS (1)
  - THROAT IRRITATION [None]
